FAERS Safety Report 7486259-5 (Version None)
Quarter: 2011Q2

REPORT INFORMATION
  Report Type: 
  Country: None (occurrence: None)
  Receive Date: 20110517
  Receipt Date: 20110316
  Transmission Date: 20111010
  Serious: No
  Sender: FDA-Public Use
  Company Number: A0919463A

PATIENT
  Sex: Male

DRUGS (1)
  1. VOTRIENT [Suspect]
     Indication: RENAL CANCER
     Dosage: 400MG TWICE PER DAY

REACTIONS (4)
  - SKIN DEPIGMENTATION [None]
  - BLOOD IRON INCREASED [None]
  - HYPERTENSION [None]
  - ALOPECIA [None]
